FAERS Safety Report 9284656 (Version 3)
Quarter: 2013Q2

REPORT INFORMATION
  Report Type: Spontaneous
  Country: US (occurrence: US)
  Receive Date: 20130513
  Receipt Date: 20130624
  Transmission Date: 20140414
  Serious: Yes (Other)
  Sender: FDA-Public Use
  Company Number: US-009507513-1305USA001297

PATIENT
  Age: 35 Year
  Sex: Female
  Weight: 64.85 kg

DRUGS (3)
  1. IMPLANON [Suspect]
     Indication: CONTRACEPTION
     Dosage: UNK
     Route: 059
     Dates: start: 201002, end: 20130508
  2. IMPLANON [Suspect]
     Dosage: UNK
     Route: 059
  3. DEPO-PROVERA [Concomitant]
     Dosage: UNK
     Dates: start: 201207

REACTIONS (7)
  - Device dislocation [Recovered/Resolved]
  - General anaesthesia [Recovered/Resolved]
  - Haemorrhagic disorder [Unknown]
  - Scar [Unknown]
  - Medical device complication [Recovered/Resolved]
  - Hysteroscopy [Unknown]
  - Pain [Unknown]
